FAERS Safety Report 23349631 (Version 1)
Quarter: 2023Q4

REPORT INFORMATION
  Report Type: Spontaneous
  Country: EU (occurrence: None)
  Receive Date: 20231229
  Receipt Date: 20231229
  Transmission Date: 20240110
  Serious: Yes (Death)
  Sender: FDA-Public Use
  Company Number: None

PATIENT
  Weight: 58 kg

DRUGS (3)
  1. BUPRENORPHINE HYDROCHLORIDE [Suspect]
     Active Substance: BUPRENORPHINE HYDROCHLORIDE
     Dates: end: 202201
  2. MORPHINE SULFATE [Suspect]
     Active Substance: MORPHINE SULFATE
     Dates: end: 202201
  3. COCAINE [Suspect]
     Active Substance: COCAINE
     Dates: end: 202201

REACTIONS (2)
  - Substance use disorder [Fatal]
  - Drug use disorder [Fatal]
